FAERS Safety Report 10248934 (Version 2)
Quarter: 2015Q1

REPORT INFORMATION
  Report Type: Spontaneous
  Country: FR (occurrence: FR)
  Receive Date: 20140620
  Receipt Date: 20150203
  Transmission Date: 20150720
  Serious: Yes (Death, Hospitalization, Other)
  Sender: FDA-Public Use
  Company Number: FR-JNJFOC-20140611191

PATIENT
  Age: 65 Year
  Sex: Male
  Weight: 122.99 kg

DRUGS (3)
  1. LOPRESSOR [Concomitant]
     Active Substance: METOPROLOL TARTRATE
     Route: 065
  2. XARELTO [Suspect]
     Active Substance: RIVAROXABAN
     Indication: CEREBROVASCULAR ACCIDENT PROPHYLAXIS
     Route: 048
     Dates: start: 20140520, end: 20140520
  3. XARELTO [Suspect]
     Active Substance: RIVAROXABAN
     Indication: ATRIAL FIBRILLATION
     Route: 048
     Dates: start: 20140520, end: 20140520

REACTIONS (5)
  - Aortic dissection [Fatal]
  - Cardiac tamponade [Fatal]
  - Drug level increased [Unknown]
  - Cardio-respiratory arrest [Fatal]
  - Pericardial haemorrhage [Fatal]

NARRATIVE: CASE EVENT DATE: 201405
